FAERS Safety Report 7236133-4 (Version None)
Quarter: 2010Q4

REPORT INFORMATION
  Report Type: 
  Country: None (occurrence: None)
  Receive Date: 20101130
  Receipt Date: 20100426
  Transmission Date: 20110411
  Serious: Yes (Other)
  Sender: FDA-Public Use
  Company Number: 2010BH002078

PATIENT
  Age: 13 Month
  Sex: Male

DRUGS (11)
  1. ADVATE [Suspect]
     Indication: HAEMOPHILIA
     Dosage: 1770 IU;AS NEEDED;IV ; ONCE;IV ; ONCE;IV ; ONCE;IV ; ONCE;IV
     Route: 042
     Dates: start: 20091023, end: 20091023
  2. ADVATE [Suspect]
     Indication: HAEMOPHILIA
     Dosage: 1770 IU;AS NEEDED;IV ; ONCE;IV ; ONCE;IV ; ONCE;IV ; ONCE;IV
     Route: 042
     Dates: start: 20091120, end: 20091120
  3. ADVATE [Suspect]
     Indication: HAEMOPHILIA
     Dosage: 1770 IU;AS NEEDED;IV ; ONCE;IV ; ONCE;IV ; ONCE;IV ; ONCE;IV
     Route: 042
     Dates: start: 20091204, end: 20091204
  4. ADVATE [Suspect]
     Indication: HAEMOPHILIA
     Dosage: 1770 IU;AS NEEDED;IV ; ONCE;IV ; ONCE;IV ; ONCE;IV ; ONCE;IV
     Route: 042
     Dates: start: 20091207, end: 20091207
  5. ADVATE [Suspect]
     Indication: HAEMOPHILIA
     Dosage: 1770 IU;AS NEEDED;IV ; ONCE;IV ; ONCE;IV ; ONCE;IV ; ONCE;IV
     Route: 042
     Dates: start: 20091223, end: 20091223
  6. ADVATE [Suspect]
  7. ADVATE [Suspect]
  8. ADVATE [Suspect]
  9. ADVATE [Suspect]
  10. AMICAR [Concomitant]
  11. EUCERIN CREME [Concomitant]

REACTIONS (1)
  - FACTOR VIII INHIBITION [None]
